FAERS Safety Report 9439857 (Version 3)
Quarter: 2013Q4

REPORT INFORMATION
  Report Type: Spontaneous
  Country: IT (occurrence: IT)
  Receive Date: 20130805
  Receipt Date: 20131017
  Transmission Date: 20140711
  Serious: Yes (Hospitalization)
  Sender: FDA-Public Use
  Company Number: IT-ROCHE-1256267

PATIENT
  Age: 51 Year
  Sex: Male

DRUGS (10)
  1. RIVOTRIL [Suspect]
     Indication: POST-TRAUMATIC EPILEPSY
     Route: 048
     Dates: start: 20130617, end: 20130624
  2. POTASSIUM CHLORIDE [Concomitant]
  3. PANTOPRAZOLE [Concomitant]
  4. COUMADIN [Concomitant]
  5. TOLEP [Concomitant]
     Indication: POST-TRAUMATIC EPILEPSY
     Route: 048
  6. DEPAKIN [Concomitant]
     Indication: POST-TRAUMATIC EPILEPSY
     Route: 065
  7. ZOLOFT [Concomitant]
  8. AKINETON [Concomitant]
  9. RISPERDAL [Concomitant]
  10. MYSOLINE [Concomitant]

REACTIONS (2)
  - Speech disorder [Recovering/Resolving]
  - Sopor [Recovering/Resolving]
